FAERS Safety Report 7577729-X (Version None)
Quarter: 2011Q2

REPORT INFORMATION
  Report Type: 
  Country: None (occurrence: None)
  Receive Date: 20110628
  Receipt Date: 20110622
  Transmission Date: 20111010
  Serious: Yes (Death)
  Sender: FDA-Public Use
  Company Number: IT-PFIZER INC-2011139297

PATIENT
  Age: 74 Year
  Sex: Male

DRUGS (8)
  1. ENALAPRIL MALEATE AND HYDROCHLOROTHIAZIDE [Concomitant]
  2. METOCLOPRAMIDE [Concomitant]
  3. SUTENT [Suspect]
     Indication: RENAL CANCER METASTATIC
     Dosage: 50 MG, 1X/DAY
     Route: 048
     Dates: start: 20101130, end: 20110517
  4. ALISKIREN [Concomitant]
  5. OXYCODONE AND ACETAMINOPHEN [Concomitant]
  6. SIMVASTATIN [Concomitant]
  7. ALLOPURINOL [Concomitant]
  8. NEBIVOLOL [Concomitant]

REACTIONS (3)
  - DIARRHOEA [None]
  - DEHYDRATION [None]
  - PLATELET COUNT DECREASED [None]
